FAERS Safety Report 7483506-0 (Version None)
Quarter: 2011Q2

REPORT INFORMATION
  Report Type: 
  Country: None (occurrence: None)
  Receive Date: 20110517
  Receipt Date: 20110503
  Transmission Date: 20111010
  Serious: Yes (Hospitalization, Other)
  Sender: FDA-Public Use
  Company Number: US-JNJFOC-20110403840

PATIENT
  Sex: Female
  Weight: 90.72 kg

DRUGS (6)
  1. OMEPRAZOLE EG [Concomitant]
     Route: 048
  2. GENTAMICIN [Concomitant]
     Route: 065
  3. TOPAMAX [Suspect]
     Indication: MIGRAINE PROPHYLAXIS
     Route: 048
  4. AMPICILLIN SODIUM [Concomitant]
     Route: 065
  5. LEXAPRO [Concomitant]
     Route: 048
  6. CLINDAMYCIN [Concomitant]
     Route: 065

REACTIONS (3)
  - ARRESTED LABOUR [None]
  - DRUG EXPOSURE DURING PREGNANCY [None]
  - URINARY TRACT INFECTION [None]
